FAERS Safety Report 10932681 (Version 1)
Quarter: 2015Q1

REPORT INFORMATION
  Report Type: Spontaneous
  Country: US (occurrence: None)
  Receive Date: 20150319
  Receipt Date: 20150319
  Transmission Date: 20150721
  Serious: Yes (Disabling)
  Sender: FDA-Public Use
  Company Number: None

PATIENT
  Age: 46 Year
  Sex: Female
  Weight: 103.87 kg

DRUGS (6)
  1. SYNTHROID [Concomitant]
     Active Substance: LEVOTHYROXINE SODIUM
  2. LEVAQUIN [Suspect]
     Active Substance: LEVOFLOXACIN
     Indication: EAR INFECTION
     Dosage: 500X1A DAY ONCE DAILY TAKEN BY MOUTH
     Route: 048
  3. SIMVASTATIN. [Concomitant]
     Active Substance: SIMVASTATIN
  4. VITAMIN D [Concomitant]
     Active Substance: CHOLECALCIFEROL
  5. LEVAQUIN [Suspect]
     Active Substance: LEVOFLOXACIN
     Indication: SINUSITIS
     Dosage: 500X1A DAY ONCE DAILY TAKEN BY MOUTH
     Route: 048
  6. MICROZIDE [Concomitant]
     Active Substance: HYDROCHLOROTHIAZIDE

REACTIONS (15)
  - Joint stiffness [None]
  - Arthralgia [None]
  - Irritability [None]
  - Myalgia [None]
  - Mood altered [None]
  - Swelling face [None]
  - Sinusitis [None]
  - Joint swelling [None]
  - Headache [None]
  - Fatigue [None]
  - Abdominal distension [None]
  - Nausea [None]
  - Muscle spasms [None]
  - Abdominal pain upper [None]
  - Local swelling [None]

NARRATIVE: CASE EVENT DATE: 20150318
